FAERS Safety Report 7712586-X (Version None)
Quarter: 2011Q3

REPORT INFORMATION
  Report Type: 
  Country: None (occurrence: None)
  Receive Date: 20110823
  Receipt Date: 20110810
  Transmission Date: 20111222
  Serious: Yes (Hospitalization, Other)
  Sender: FDA-Public Use
  Company Number: 2011EG0143

PATIENT
  Age: 4 Year
  Sex: Female

DRUGS (1)
  1. ORFADIN [Suspect]
     Indication: TYROSINAEMIA
     Dosage: 0,65 MG/KG (0,65 MG/KG, 1 IN 1 D)
     Dates: start: 20070410

REACTIONS (3)
  - HEPATIC CIRRHOSIS [None]
  - LIVER TRANSPLANT [None]
  - ECONOMIC PROBLEM [None]
